FAERS Safety Report 14801537 (Version 5)
Quarter: 2019Q2

REPORT INFORMATION
  Report Type: Report from Study
  Country: PA (occurrence: PA)
  Receive Date: 20180424
  Receipt Date: 20190606
  Transmission Date: 20190711
  Serious: Yes (Other)
  Sender: FDA-Public Use
  Company Number: PHHY2016PA125442

PATIENT
  Sex: Female
  Weight: 88.89 kg

DRUGS (5)
  1. SANDOSTATIN LAR DEPOT [Suspect]
     Active Substance: OCTREOTIDE ACETATE
     Dosage: 20 MG, UNK
     Route: 065
     Dates: start: 20190527
  2. SANDOSTATIN LAR DEPOT [Suspect]
     Active Substance: OCTREOTIDE ACETATE
     Indication: PITUITARY TUMOUR
     Dosage: 20 MG, QMO
     Route: 065
     Dates: start: 2006, end: 201806
  3. OCTREOTIDE. [Suspect]
     Active Substance: OCTREOTIDE
     Indication: PRODUCT USED FOR UNKNOWN INDICATION
     Dosage: UNK UNK, TID
     Route: 065
  4. CABERGOLINE. [Concomitant]
     Active Substance: CABERGOLINE
     Indication: PRODUCT USED FOR UNKNOWN INDICATION
     Dosage: 1 DF, BID
     Route: 048
  5. SANDOSTATIN LAR DEPOT [Suspect]
     Active Substance: OCTREOTIDE ACETATE
     Indication: ACROMEGALY
     Dosage: 20 MG, QMO
     Route: 030
     Dates: start: 2004

REACTIONS (42)
  - Large intestine polyp [Recovered/Resolved]
  - Polyuria [Unknown]
  - Dry mouth [Unknown]
  - Paranasal sinus hypersecretion [Unknown]
  - Food allergy [Unknown]
  - Inappropriate schedule of product administration [Unknown]
  - Cholecystitis chronic [Unknown]
  - Vaginal haemorrhage [Unknown]
  - Bone pain [Unknown]
  - Blood uric acid increased [Unknown]
  - Gastrointestinal haemorrhage [Recovered/Resolved]
  - Anaemia [Not Recovered/Not Resolved]
  - Hypertension [Not Recovered/Not Resolved]
  - Blood growth hormone decreased [Unknown]
  - Allergy to chemicals [Unknown]
  - Cholelithiasis [Unknown]
  - Colon neoplasm [Unknown]
  - Polycystic ovaries [Unknown]
  - Dizziness [Unknown]
  - Weight decreased [Unknown]
  - Dyslipidaemia [Unknown]
  - Blood triglycerides increased [Unknown]
  - Hypothyroidism [Not Recovered/Not Resolved]
  - Fatigue [Not Recovered/Not Resolved]
  - Dyspepsia [Unknown]
  - Type 2 diabetes mellitus [Unknown]
  - Gastrointestinal tract irritation [Unknown]
  - Blood cholesterol increased [Unknown]
  - Abdominal pain [Unknown]
  - Pruritus [Unknown]
  - Peripheral swelling [Unknown]
  - Metrorrhagia [Unknown]
  - Diarrhoea [Unknown]
  - Injection site pain [Unknown]
  - Polydipsia [Unknown]
  - Hormone level abnormal [Unknown]
  - Back pain [Not Recovered/Not Resolved]
  - Feeling abnormal [Unknown]
  - Bone disorder [Unknown]
  - Breast cyst [Unknown]
  - Headache [Unknown]
  - Hypersensitivity [Unknown]

NARRATIVE: CASE EVENT DATE: 2009
